FAERS Safety Report 12492041 (Version 3)
Quarter: 2016Q3

REPORT INFORMATION
  Report Type: Other
  Country: US (occurrence: US)
  Receive Date: 20160623
  Receipt Date: 20160808
  Transmission Date: 20161109
  Serious: Yes (Other)
  Sender: FDA-Public Use
  Company Number: US-ACORDA-ACO_125276_2016

PATIENT
  Sex: Female

DRUGS (3)
  1. AMPYRA [Suspect]
     Active Substance: DALFAMPRIDINE
     Indication: MULTIPLE SCLEROSIS
     Dosage: 10 MG, BID
     Route: 048
  2. TYSABRI [Concomitant]
     Active Substance: NATALIZUMAB
     Indication: PRODUCT USED FOR UNKNOWN INDICATION
     Dosage: 250 MG, MONTHLY
     Route: 042
     Dates: start: 2015
  3. BUPROPION. [Concomitant]
     Active Substance: BUPROPION
     Indication: PRODUCT USED FOR UNKNOWN INDICATION
     Dosage: 150 MG, BID
     Route: 048
     Dates: start: 201601

REACTIONS (4)
  - Eye disorder [Not Recovered/Not Resolved]
  - Abdominal discomfort [Unknown]
  - Multiple sclerosis relapse [Recovering/Resolving]
  - Depression [Unknown]

NARRATIVE: CASE EVENT DATE: 201511
